FAERS Safety Report 9596584 (Version 1)
Quarter: 2013Q4

REPORT INFORMATION
  Report Type: Spontaneous
  Country: US (occurrence: US)
  Receive Date: 20131004
  Receipt Date: 20131004
  Transmission Date: 20140711
  Serious: Yes (Hospitalization)
  Sender: FDA-Public Use
  Company Number: US-BAYER-2013-119993

PATIENT
  Age: 20 Year
  Sex: Female

DRUGS (6)
  1. YAZ [Suspect]
  2. HYDROCODONE W/APAP [Concomitant]
     Dosage: 7.5-750
  3. DOXICYCLIN [Concomitant]
     Dosage: 100 MG, UNK
  4. TRAZODONE [Concomitant]
     Dosage: 50 MG, UNK
  5. PERCOCET [OXYCODONE HYDROCHLORIDE,OXYCODONE TEREPHTHALATE,PARACETA [Concomitant]
  6. NICODERM [Concomitant]

REACTIONS (5)
  - Deep vein thrombosis [None]
  - Swelling [None]
  - Pelvic pain [None]
  - Skin discolouration [None]
  - Headache [None]
